FAERS Safety Report 7395515-0 (Version None)
Quarter: 2011Q2

REPORT INFORMATION
  Report Type: 
  Country: None (occurrence: None)
  Receive Date: 20110405
  Receipt Date: 20110401
  Transmission Date: 20111010
  Serious: Yes (Other)
  Sender: FDA-Public Use
  Company Number: US-BAYER-2011-028616

PATIENT
  Sex: Female

DRUGS (2)
  1. YASMIN [Suspect]
     Dosage: UNK
     Dates: start: 20070401, end: 20080301
  2. YAZ [Suspect]
     Dosage: UNK
     Dates: start: 20070401, end: 20080301

REACTIONS (7)
  - MENTAL DISORDER [None]
  - INJURY [None]
  - CHOLELITHIASIS [None]
  - FEAR [None]
  - PAIN [None]
  - EMOTIONAL DISTRESS [None]
  - ANXIETY [None]
